FAERS Safety Report 7767854-2 (Version None)
Quarter: 2011Q3

REPORT INFORMATION
  Report Type: 
  Country: None (occurrence: None)
  Receive Date: 20110922
  Receipt Date: 20110422
  Transmission Date: 20111222
  Serious: Yes (Hospitalization)
  Sender: FDA-Public Use
  Company Number: US-ASTRAZENECA-2011SE09713

PATIENT
  Age: 16 Year
  Sex: Female

DRUGS (4)
  1. SEROQUEL [Suspect]
     Route: 048
  2. SEROQUEL [Suspect]
     Route: 048
  3. SEROQUEL [Suspect]
     Route: 048
  4. SEROQUEL [Suspect]
     Route: 048

REACTIONS (4)
  - INCORRECT DOSE ADMINISTERED [None]
  - MENTAL DISORDER [None]
  - DRUG DOSE OMISSION [None]
  - AGGRESSION [None]
